FAERS Safety Report 6620349-1 (Version None)
Quarter: 2010Q1

REPORT INFORMATION
  Report Type: 
  Country: None (occurrence: None)
  Receive Date: 20100309
  Receipt Date: 20090106
  Transmission Date: 20100710
  Serious: No
  Sender: FDA-Public Use
  Company Number: US-ALLERGAN-0813323US

PATIENT
  Age: 78 Year
  Sex: Female

DRUGS (16)
  1. BOTOX [Suspect]
     Indication: PARKINSON'S DISEASE
     Dosage: 100 UNITS, SINGLE
     Route: 030
     Dates: start: 20081006, end: 20081006
  2. BOTOX [Suspect]
     Indication: TORTICOLLIS
  3. TRAMADOL HCL [Concomitant]
     Dosage: 100 MG, Q 4-6 H
  4. LIDODERM [Concomitant]
     Dosage: UNK, Q12H
  5. PAROXETINE HCL [Concomitant]
     Dosage: 20 MG, QD
  6. PAROXETINE HCL [Concomitant]
     Dosage: 20 MG, QD
     Dates: start: 20081015
  7. FLUDROCORT [Concomitant]
     Dosage: 0.1 MG, QD
  8. CARBIDOPA + LEVODOPA [Concomitant]
     Dosage: 5200 TIME RELEASE, 2.5 PILLS QD
  9. ARICEPT [Concomitant]
     Dosage: 10 MG, QD
  10. ENAVLEX [Concomitant]
     Dosage: 7.5 MG, QD
  11. COMTAN [Concomitant]
     Dosage: 200 MG, BID
  12. FOSAMAX [Concomitant]
     Dosage: 70 MG, Q WEEK
  13. PROVIGIL [Concomitant]
     Dosage: 200 MG, QD
  14. MECLIZINE [Concomitant]
     Dosage: 25 MG, TID
     Route: 048
  15. TYLENOL-500 [Concomitant]
     Dosage: UNK, BID
  16. LAXATIVE [Concomitant]
     Dosage: UNK, QHS, PRN

REACTIONS (2)
  - DRUG INEFFECTIVE [None]
  - INJECTION SITE PAIN [None]
